FAERS Safety Report 10120438 (Version 1)
Quarter: 2014Q2

REPORT INFORMATION
  Report Type: Spontaneous
  Country: US (occurrence: US)
  Receive Date: 20140425
  Receipt Date: 20140425
  Transmission Date: 20141212
  Serious: No
  Sender: FDA-Public Use
  Company Number: US-PFIZER INC-2014113975

PATIENT
  Age: 60 Year
  Sex: Female

DRUGS (11)
  1. CELEBREX [Suspect]
     Dosage: UNK
  2. PROTONIX [Suspect]
     Dosage: UNK
  3. IBUPROFEN [Suspect]
     Dosage: UNK
  4. AMOXICILLIN [Suspect]
     Dosage: UNK
  5. CLONAZEPAM [Suspect]
     Dosage: UNK
  6. AMBIEN [Suspect]
     Dosage: UNK
  7. AVELOX [Suspect]
     Dosage: UNK
  8. CECLOR [Suspect]
     Dosage: UNK
  9. NABUMETONE [Suspect]
     Dosage: UNK
  10. PROPOXYPHENE NAPSYLATE W/ACETAMINOPHENE [Suspect]
     Dosage: UNK
  11. CYMBALTA [Suspect]
     Dosage: UNK

REACTIONS (1)
  - Drug hypersensitivity [Unknown]
